FAERS Safety Report 4367877-X (Version None)
Quarter: 2004Q2

REPORT INFORMATION
  Report Type: 
  Country: None (occurrence: None)
  Receive Date: 20040601
  Receipt Date: 20040601
  Transmission Date: 20050107
  Serious: Yes (Death)
  Sender: FDA-Public Use
  Company Number: None

PATIENT
  Age: 78 Year
  Sex: Female
  Weight: 72.5755 kg

DRUGS (2)
  1. AMIODARONE VARIOUS STRENGTHS [Suspect]
     Indication: ARRHYTHMIA
     Dosage: VARIED
     Dates: start: 19990415, end: 20000115
  2. LANOXIN [Concomitant]

REACTIONS (11)
  - ANAEMIA [None]
  - ASTHENIA [None]
  - CHEST PAIN [None]
  - COORDINATION ABNORMAL [None]
  - DIZZINESS [None]
  - DYSPNOEA [None]
  - FATIGUE [None]
  - HEPATIC CIRRHOSIS [None]
  - HEPATOCELLULAR DAMAGE [None]
  - NECK PAIN [None]
  - OEDEMA PERIPHERAL [None]
